FAERS Safety Report 24266219 (Version 1)
Quarter: 2024Q3

REPORT INFORMATION
  Report Type: Spontaneous
  Country: CN (occurrence: CN)
  Receive Date: 20240830
  Receipt Date: 20240830
  Transmission Date: 20241017
  Serious: Yes (Hospitalization)
  Sender: Haleon PLC
  Company Number: CN-HALEON-2193810

PATIENT
  Age: 54 Year
  Sex: Male

DRUGS (1)
  1. IBUPROFEN [Suspect]
     Active Substance: IBUPROFEN
     Indication: Arthralgia
     Route: 048
     Dates: start: 20240720, end: 20240729

REACTIONS (13)
  - Erythema [Recovered/Resolved]
  - Condition aggravated [Recovered/Resolved]
  - Scab [Recovered/Resolved]
  - Dermatitis allergic [Recovered/Resolved]
  - Vulvovaginal erythema [Recovered/Resolved]
  - Lip erythema [Recovered/Resolved]
  - Lip swelling [Recovered/Resolved]
  - Ocular hyperaemia [Recovered/Resolved]
  - Eye swelling [Recovered/Resolved]
  - Vulvovaginal discomfort [Recovered/Resolved]
  - Vulval disorder [Recovered/Resolved]
  - Feeling hot [Recovered/Resolved]
  - Extravasation [Recovered/Resolved]

NARRATIVE: CASE EVENT DATE: 20240725
